FAERS Safety Report 5732803-5 (Version None)
Quarter: 2008Q2

REPORT INFORMATION
  Report Type: 
  Country: None (occurrence: None)
  Receive Date: 20080507
  Receipt Date: 20080507
  Transmission Date: 20081010
  Serious: Yes (Hospitalization)
  Sender: FDA-Public Use
  Company Number: None

PATIENT
  Sex: Male
  Weight: 71 kg

DRUGS (11)
  1. WARFARIN SODIUM [Suspect]
     Dosage: 5MG DAILY, 2.5MG FRI DAILY ORAL  CHRONIC
     Route: 048
     Dates: start: 19900101
  2. SPIRONOLACTONE [Concomitant]
  3. OMEPRAZOLE [Concomitant]
  4. M.V.I. [Concomitant]
  5. IRON SUPPL [Concomitant]
  6. FOLIC ACID [Concomitant]
  7. ROPINOROLE [Concomitant]
  8. TAMOXIFEN CITRATE [Concomitant]
  9. FUROSEMIDE [Concomitant]
  10. DIGOXIN [Concomitant]
  11. ALLOPURINOL [Concomitant]

REACTIONS (6)
  - ACUTE PRERENAL FAILURE [None]
  - DRUG TOXICITY [None]
  - GASTROINTESTINAL HAEMORRHAGE [None]
  - HYPOVOLAEMIA [None]
  - INTERNATIONAL NORMALISED RATIO INCREASED [None]
  - RENAL FAILURE ACUTE [None]
